FAERS Safety Report 5918887-X (Version None)
Quarter: 2008Q4

REPORT INFORMATION
  Report Type: 
  Country: None (occurrence: None)
  Receive Date: 20081015
  Receipt Date: 20081003
  Transmission Date: 20090506
  Serious: Yes (Hospitalization)
  Sender: FDA-Public Use
  Company Number: US-AMGEN-US311403

PATIENT
  Sex: Female

DRUGS (1)
  1. ENBREL [Suspect]
     Indication: RHEUMATOID ARTHRITIS
     Route: 058
     Dates: start: 20001001, end: 20080601

REACTIONS (5)
  - ARTHRALGIA [None]
  - CHOLECYSTITIS INFECTIVE [None]
  - DEVICE RELATED INFECTION [None]
  - HIP ARTHROPLASTY [None]
  - LARYNGITIS [None]
